FAERS Safety Report 18972789 (Version 1)
Quarter: 2021Q1

REPORT INFORMATION
  Report Type: Spontaneous
  Country: US (occurrence: US)
  Receive Date: 20210304
  Receipt Date: 20210304
  Transmission Date: 20210420
  Serious: Yes (Death, Hospitalization)
  Sender: FDA-Public Use
  Company Number: None

PATIENT
  Sex: Male

DRUGS (5)
  1. CYTARABINE 70MG [Suspect]
     Active Substance: CYTARABINE
     Dates: end: 20190724
  2. DEXAMETHASONE 140MG [Suspect]
     Active Substance: DEXAMETHASONE
     Dates: end: 20190729
  3. METHOTREXATE 12.5MG MAYNE PHARMACEUTICALS [Suspect]
     Active Substance: METHOTREXATE
     Dates: end: 20190805
  4. DAUNORUBICIN 150MG [Suspect]
     Active Substance: DAUNORUBICIN
     Dates: end: 20190806
  5. VINCRISTINE SULFATE 6MG [Suspect]
     Active Substance: VINCRISTINE SULFATE
     Dates: end: 20190806

REACTIONS (7)
  - Thrombocytopenia [None]
  - Neutropenia [None]
  - Hypoxia [None]
  - Localised oedema [None]
  - Leukopenia [None]
  - Bacterial sepsis [None]
  - Tachycardia [None]
